FAERS Safety Report 8352023-8 (Version None)
Quarter: 2012Q2

REPORT INFORMATION
  Report Type: 
  Country: None (occurrence: None)
  Receive Date: 20120510
  Receipt Date: 20120510
  Transmission Date: 20120825
  Serious: Yes (Hospitalization, Other)
  Sender: FDA-Public Use
  Company Number: None

PATIENT
  Age: 55 Year
  Sex: Male
  Weight: 62.4 kg

DRUGS (1)
  1. IBUPROFEN [Suspect]
     Indication: PAIN
     Dosage: 600 MG TID PO
     Route: 050
     Dates: start: 20120106, end: 20120220

REACTIONS (2)
  - HAEMORRHAGE [None]
  - GASTRIC HAEMORRHAGE [None]
